FAERS Safety Report 7113726-6 (Version None)
Quarter: 2010Q4

REPORT INFORMATION
  Report Type: 
  Country: None (occurrence: None)
  Receive Date: 20101119
  Receipt Date: 20101111
  Transmission Date: 20110411
  Serious: Yes (Other)
  Sender: FDA-Public Use
  Company Number: US-WATSON-2010-14907

PATIENT

DRUGS (2)
  1. FENTANYL CITRATE [Suspect]
     Indication: DRUG EXPOSURE DURING PREGNANCY
     Dosage: UNK
     Route: 064
  2. BUPIVACAINE HCL [Suspect]
     Indication: DRUG EXPOSURE DURING PREGNANCY
     Dosage: UNK
     Route: 064

REACTIONS (1)
  - BRADYCARDIA FOETAL [None]
